FAERS Safety Report 9698701 (Version 2)
Quarter: 2014Q1

REPORT INFORMATION
  Report Type: Spontaneous
  Country: US (occurrence: US)
  Receive Date: 20131120
  Receipt Date: 20140106
  Transmission Date: 20141002
  Serious: No
  Sender: FDA-Public Use
  Company Number: US-GILEAD-2013-0088167

PATIENT
  Sex: Female

DRUGS (4)
  1. LETAIRIS [Suspect]
     Indication: PRODUCT USED FOR UNKNOWN INDICATION
     Dosage: 10 MG, QD
     Route: 048
     Dates: start: 20131031
  2. RAMIPRIL [Suspect]
     Dosage: UNK
     Dates: end: 201310
  3. ATENOLOL [Suspect]
     Dosage: UNK
     Dates: end: 201310
  4. NIFEDIPINE [Suspect]
     Dosage: UNK
     Dates: end: 201310

REACTIONS (3)
  - Hypotension [Recovered/Resolved]
  - Urticaria [Unknown]
  - Oedema peripheral [Not Recovered/Not Resolved]
